FAERS Safety Report 8610191 (Version 6)
Quarter: 2013Q3

REPORT INFORMATION
  Report Type: Spontaneous
  Country: US (occurrence: US)
  Receive Date: 20120612
  Receipt Date: 20130925
  Transmission Date: 20140515
  Serious: Yes (Disabling, Other)
  Sender: FDA-Public Use
  Company Number: US-PFIZER INC-2012136307

PATIENT
  Age: 25 Year
  Sex: Female
  Weight: 63.95 kg

DRUGS (5)
  1. EFFEXOR XR [Suspect]
     Indication: ANXIETY
     Dosage: 225 MG (THREE CAPSULES OF 75MG), 1X/DAY
     Route: 048
     Dates: start: 2007
  2. EFFEXOR XR [Suspect]
     Indication: SOCIAL PHOBIA
     Dosage: 75 MG, 3X/DAY
     Route: 048
  3. EFFEXOR XR [Suspect]
     Indication: DEPRESSION
  4. KLONOPIN [Concomitant]
     Dosage: 1 MG, 3X/DAY
  5. FLEXERIL [Concomitant]
     Dosage: UNK

REACTIONS (13)
  - Nervous system disorder [Unknown]
  - Nerve degeneration [Unknown]
  - Multiple sclerosis [Unknown]
  - Abasia [Unknown]
  - Muscular dystrophy [Unknown]
  - Mitochondrial myopathy [Unknown]
  - Blindness [Unknown]
  - Mydriasis [Unknown]
  - Withdrawal syndrome [Unknown]
  - Constipation [Unknown]
  - Gastric disorder [Unknown]
  - Cardiac disorder [Unknown]
  - Muscular weakness [Unknown]
